FAERS Safety Report 9686665 (Version 1)
Quarter: 2013Q4

REPORT INFORMATION
  Report Type: Spontaneous
  Country: US (occurrence: US)
  Receive Date: 20131113
  Receipt Date: 20131113
  Transmission Date: 20140711
  Serious: Yes (Other)
  Sender: FDA-Public Use
  Company Number: US-CUBIST PHARMACEUTICAL, INC.-2013CBST000668

PATIENT
  Sex: 0

DRUGS (7)
  1. CUBICIN [Suspect]
     Indication: STAPHYLOCOCCAL BACTERAEMIA
     Dosage: 6 MG/KG, Q24H
     Route: 042
     Dates: start: 20130327, end: 20130417
  2. CUBICIN [Suspect]
     Indication: PNEUMONIA
     Dosage: 575 MG, Q24H
     Route: 042
     Dates: start: 20130327, end: 20130417
  3. CUBICIN [Suspect]
     Indication: MYOSITIS
  4. IBUPROFEN [Concomitant]
     Indication: PAIN
     Dosage: 600 MG, Q8H
     Route: 048
     Dates: start: 20130327, end: 20130331
  5. CLINDAMYCIN [Concomitant]
     Indication: INFECTION
     Dosage: 900 MG, Q8H
     Route: 042
     Dates: start: 20130324, end: 20130330
  6. CLINDAMYCIN [Concomitant]
     Dosage: 600 MG, TID
     Route: 048
     Dates: start: 20130330
  7. VANCOMYCIN [Concomitant]
     Indication: INFECTION
     Dosage: 1000 MG, Q8H
     Route: 042
     Dates: start: 20130325, end: 20130327

REACTIONS (1)
  - Blood creatine phosphokinase increased [Recovering/Resolving]
